FAERS Safety Report 6501763-1 (Version None)
Quarter: 2009Q4

REPORT INFORMATION
  Report Type: 
  Country: None (occurrence: None)
  Receive Date: 20091216
  Receipt Date: 20091204
  Transmission Date: 20100525
  Serious: Yes (Hospitalization, Other)
  Sender: FDA-Public Use
  Company Number: US-PFIZER INC-2009290038

PATIENT
  Sex: Female
  Weight: 55.8 kg

DRUGS (20)
  1. ZOLOFT [Suspect]
     Indication: ANXIETY DISORDER
     Dosage: 50 MG, 1X/DAY
     Route: 048
     Dates: end: 20091002
  2. ZOLOFT [Interacting]
     Indication: DEPRESSION
  3. DRONEDARONE [Interacting]
     Indication: ATRIAL FIBRILLATION
     Dosage: 400 MG, 2X/DAY
     Route: 048
     Dates: start: 20090925, end: 20091002
  4. ALPRAZOLAM [Concomitant]
  5. MAGNESIUM SULFATE [Concomitant]
     Route: 042
  6. PHENAZOPYRIDINE HYDROCHLORIDE [Concomitant]
     Dosage: UNK, AS NEEDED
  7. ALBUTEROL [Concomitant]
  8. LEVOSALBUTAMOL [Concomitant]
  9. PARACETAMOL [Concomitant]
     Dosage: UNK, AS NEEDED
  10. WARFARIN [Concomitant]
     Dosage: 3 MG, UNK
  11. ACETYLSALICYLIC ACID [Concomitant]
     Dosage: 81 MG, UNK
  12. CALCIUM WITH VITAMIN D [Concomitant]
     Dosage: UNK
  13. DIGOXIN [Concomitant]
     Dosage: UNK
  14. MONTELUKAST SODIUM [Concomitant]
     Dosage: UNK
  15. SPIRIVA [Concomitant]
     Dosage: UNK
  16. PERCOCET [Concomitant]
     Dosage: UNK
  17. CENTRUM SILVER [Concomitant]
     Dosage: UNK
  18. ADVAIR DISKUS 100/50 [Concomitant]
     Dosage: UNK
  19. BENADRYL [Concomitant]
     Dosage: UNK
  20. PREDNISONE [Concomitant]
     Dosage: UNK

REACTIONS (4)
  - ATRIAL FIBRILLATION [None]
  - DRUG INTERACTION [None]
  - DYSTONIA [None]
  - SEROTONIN SYNDROME [None]
